FAERS Safety Report 5915040-0 (Version None)
Quarter: 2008Q4

REPORT INFORMATION
  Report Type: 
  Country: None (occurrence: None)
  Receive Date: 20081010
  Receipt Date: 20081001
  Transmission Date: 20090506
  Serious: Yes (Other)
  Sender: FDA-Public Use
  Company Number: FR-JNJFOC-20080904984

PATIENT
  Age: 32 Year
  Sex: Female
  Weight: 80 kg

DRUGS (5)
  1. REMICADE [Suspect]
     Dosage: 2ND INFUSION
     Route: 042
  2. REMICADE [Suspect]
     Indication: RHEUMATOID ARTHRITIS
     Dosage: 1ST INFUSION
     Route: 042
  3. METHOTREXATE SODIUM [Concomitant]
     Indication: RHEUMATOID ARTHRITIS
     Route: 048
  4. DOLIPRANE [Concomitant]
     Indication: RHEUMATOID ARTHRITIS
     Route: 048
  5. SPECIAFOLDINE [Concomitant]
     Indication: RHEUMATOID ARTHRITIS
     Route: 048

REACTIONS (6)
  - DYSPNOEA [None]
  - FACE OEDEMA [None]
  - INFUSION RELATED REACTION [None]
  - PALPITATIONS [None]
  - TACHYCARDIA [None]
  - URTICARIA [None]
